FAERS Safety Report 4463342-X (Version None)
Quarter: 2004Q3

REPORT INFORMATION
  Report Type: 
  Country: None (occurrence: None)
  Receive Date: 20040930
  Receipt Date: 20040916
  Transmission Date: 20050211
  Serious: Yes (Death, Hospitalization, Other)
  Sender: FDA-Public Use
  Company Number: SEWYE046917SEP04

PATIENT
  Sex: Female

DRUGS (19)
  1. ENBREL [Suspect]
     Indication: RHEUMATOID ARTHRITIS
     Route: 058
     Dates: start: 19990401, end: 20030218
  2. IMUREL [Suspect]
  3. MYOCRISIN [Suspect]
  4. SANDIMMUNE [Suspect]
  5. METHOTREXATE [Suspect]
  6. FLUTICASONE/SALMETEROL [Suspect]
  7. LOSEC [Concomitant]
  8. MOVICOL [Concomitant]
  9. LACTULOSE [Concomitant]
  10. LEVAXIN [Concomitant]
  11. ACETAMINOPHEN [Concomitant]
  12. VITAMIN B COMPLEX CAP [Concomitant]
  13. TRIAMCINOLONE ACETONIDE [Concomitant]
  14. PREDNISOLONE [Concomitant]
  15. SODIUM FLUORIDE [Concomitant]
  16. CITODON [Concomitant]
  17. ATROVENT [Concomitant]
  18. CALCICHEW [Concomitant]
  19. TRAMADOL HYDROCHLORIDE [Concomitant]

REACTIONS (2)
  - DEATH [None]
  - NEOPLASM MALIGNANT [None]
